FAERS Safety Report 21276932 (Version 1)
Quarter: 2022Q3

REPORT INFORMATION
  Report Type: Spontaneous
  Country: US (occurrence: US)
  Receive Date: 20220831
  Receipt Date: 20220831
  Transmission Date: 20221026
  Serious: No
  Sender: FDA-Public Use
  Company Number: US-ABBVIE-22K-163-4365420-00

PATIENT
  Age: 18 Year
  Sex: Female

DRUGS (7)
  1. HUMIRA [Suspect]
     Active Substance: ADALIMUMAB
     Indication: Tubulointerstitial nephritis and uveitis syndrome
     Route: 058
     Dates: start: 20220331
  2. FOLIC ACID [Concomitant]
     Active Substance: FOLIC ACID
     Indication: Supplementation therapy
  3. METHOTREXATE [Concomitant]
     Active Substance: METHOTREXATE
     Indication: Tubulointerstitial nephritis and uveitis syndrome
  4. PREDNISONE [Concomitant]
     Active Substance: PREDNISONE
     Indication: Tubulointerstitial nephritis and uveitis syndrome
  5. CYCLOPENTOLATE [Concomitant]
     Active Substance: CYCLOPENTOLATE
     Indication: Tubulointerstitial nephritis and uveitis syndrome
  6. PREDNISOLONE [Concomitant]
     Active Substance: PREDNISOLONE
     Indication: Tubulointerstitial nephritis and uveitis syndrome
  7. TOBRAMYCIN [Concomitant]
     Active Substance: TOBRAMYCIN
     Indication: Tubulointerstitial nephritis and uveitis syndrome

REACTIONS (3)
  - Off label use [Not Recovered/Not Resolved]
  - Product administration error [Not Recovered/Not Resolved]
  - Injection site haemorrhage [Recovered/Resolved]

NARRATIVE: CASE EVENT DATE: 20220331
